FAERS Safety Report 6531194-X (Version None)
Quarter: 2010Q1

REPORT INFORMATION
  Report Type: 
  Country: None (occurrence: None)
  Receive Date: 20100108
  Receipt Date: 20091228
  Transmission Date: 20100710
  Serious: Yes (Life-Threatening, Hospitalization, Other)
  Sender: FDA-Public Use
  Company Number: PHHY2009FR59262

PATIENT
  Sex: Female

DRUGS (7)
  1. LAMPRENE [Suspect]
     Dosage: 100 MG, TID
     Route: 048
     Dates: start: 20090918, end: 20091104
  2. PLAQUENIL [Suspect]
     Indication: RHEUMATOID ARTHRITIS
     Dosage: 200 MG, TID
     Route: 048
     Dates: start: 20090925, end: 20091104
  3. TARDYFERON [Concomitant]
     Dosage: 80 MG, QD
     Route: 048
     Dates: start: 20090925
  4. SPECIAFOLDINE [Concomitant]
     Dosage: ONE TABLET ONCE DAILY
     Route: 048
     Dates: start: 20090925
  5. METHOTREXATE [Concomitant]
     Dosage: UNK
     Dates: start: 20090918
  6. CORTANCYL [Concomitant]
     Dosage: UNK
     Dates: start: 20090918
  7. FURADANTIN [Concomitant]
     Dosage: UNK
     Dates: start: 20091026, end: 20091102

REACTIONS (6)
  - ARRHYTHMIA [None]
  - CARDIO-RESPIRATORY ARREST [None]
  - MALAISE [None]
  - SYNCOPE [None]
  - TORSADE DE POINTES [None]
  - URINARY TRACT INFECTION [None]
